FAERS Safety Report 9181673 (Version 3)
Quarter: 2013Q3

REPORT INFORMATION
  Report Type: Report from Study
  Country: US (occurrence: US)
  Receive Date: 20130322
  Receipt Date: 20130725
  Transmission Date: 20140515
  Serious: Yes (Hospitalization)
  Sender: FDA-Public Use
  Company Number: US-ELI_LILLY_AND_COMPANY-US201112003791

PATIENT
  Sex: Female
  Weight: 47.17 kg

DRUGS (1)
  1. TERIPARATIDE [Suspect]
     Indication: OSTEOPOROSIS POSTMENOPAUSAL
     Dosage: 20 UG, QD

REACTIONS (4)
  - Tracheal injury [Recovered/Resolved]
  - Fatigue [Recovered/Resolved]
  - Asthenia [Unknown]
  - Bronchial secretion retention [Unknown]
